FAERS Safety Report 6182004-4 (Version None)
Quarter: 2009Q2

REPORT INFORMATION
  Report Type: 
  Country: None (occurrence: None)
  Receive Date: 20090505
  Receipt Date: 20090428
  Transmission Date: 20091009
  Serious: No
  Sender: FDA-Public Use
  Company Number: 090147

PATIENT
  Sex: Female

DRUGS (1)
  1. HALFLYTELY [Suspect]
     Indication: COLONOSCOPY
     Dosage: 10MG/1X/PO
     Route: 048
     Dates: start: 20090428

REACTIONS (2)
  - LOSS OF CONSCIOUSNESS [None]
  - MUSCLE SPASMS [None]
